FAERS Safety Report 4717051-X (Version None)
Quarter: 2005Q3

REPORT INFORMATION
  Report Type: 
  Country: None (occurrence: None)
  Receive Date: 20050719
  Receipt Date: 20050708
  Transmission Date: 20060218
  Serious: Yes (Death, Hospitalization)
  Sender: FDA-Public Use
  Company Number: US-JNJFOC-20040204195

PATIENT
  Sex: Male
  Weight: 87.54 kg

DRUGS (4)
  1. DURAGESIC-100 [Suspect]
     Route: 062
     Dates: start: 20030820, end: 20040127
  2. DURAGESIC-100 [Suspect]
     Route: 062
     Dates: start: 20030820, end: 20040127
  3. DURAGESIC-100 [Suspect]
     Route: 062
     Dates: start: 20030820, end: 20040127
  4. DURAGESIC-100 [Suspect]
     Route: 062
     Dates: start: 20030820, end: 20040127

REACTIONS (17)
  - AGITATION [None]
  - CONSTIPATION [None]
  - DIZZINESS [None]
  - DRUG ABUSER [None]
  - DRUG ADMINISTRATION ERROR [None]
  - DYSARTHRIA [None]
  - HYPERSOMNIA [None]
  - HYPOKINESIA [None]
  - IRRITABILITY [None]
  - LIBIDO DECREASED [None]
  - ROAD TRAFFIC ACCIDENT [None]
  - SOMNOLENCE [None]
  - STRESS [None]
  - SUICIDAL IDEATION [None]
  - THERAPEUTIC RESPONSE DECREASED [None]
  - URTICARIA [None]
  - WEIGHT DECREASED [None]
